FAERS Safety Report 5494729-4 (Version None)
Quarter: 2007Q4

REPORT INFORMATION
  Report Type: 
  Country: None (occurrence: None)
  Receive Date: 20071023
  Receipt Date: 20071023
  Transmission Date: 20080405
  Serious: No
  Sender: FDA-Public Use
  Company Number: None

PATIENT
  Sex: Female
  Weight: 54.4316 kg

DRUGS (1)
  1. VYTORIN [Suspect]

REACTIONS (4)
  - DEPRESSION [None]
  - MUSCULAR WEAKNESS [None]
  - MYALGIA [None]
  - NECK INJURY [None]
